FAERS Safety Report 24126418 (Version 2)
Quarter: 2024Q3

REPORT INFORMATION
  Report Type: Report from Study
  Country: CO (occurrence: CO)
  Receive Date: 20240723
  Receipt Date: 20240805
  Transmission Date: 20241016
  Serious: Yes (Hospitalization)
  Sender: JOHNSON AND JOHNSON
  Company Number: CO-JNJFOC-20240749886

PATIENT
  Age: 79 Year
  Sex: Female
  Weight: 46 kg

DRUGS (9)
  1. SIMPONI [Suspect]
     Active Substance: GOLIMUMAB
     Indication: Rheumatoid arthritis
     Dosage: LATEST DRUG APPLICATION: 15-MAY-2024
     Route: 058
     Dates: start: 20230810
  2. PREDNISOLONE [Concomitant]
     Active Substance: PREDNISOLONE
  3. FOLIC ACID [Concomitant]
     Active Substance: FOLIC ACID
  4. LOSARTAN [Concomitant]
     Active Substance: LOSARTAN
  5. AMLODIPINE [Concomitant]
     Active Substance: AMLODIPINE BESYLATE
  6. DENOSUMAB [Concomitant]
     Active Substance: DENOSUMAB
  7. ESOMEPRAZOLE [Concomitant]
     Active Substance: ESOMEPRAZOLE
  8. ACETAMINOPHEN [Concomitant]
     Active Substance: ACETAMINOPHEN
  9. METHOTREXATE [Concomitant]
     Active Substance: METHOTREXATE

REACTIONS (5)
  - Herpes zoster [Recovering/Resolving]
  - Blood sodium decreased [Recovering/Resolving]
  - Blood chloride decreased [Recovering/Resolving]
  - Blood potassium decreased [Recovering/Resolving]
  - Memory impairment [Recovering/Resolving]

NARRATIVE: CASE EVENT DATE: 20240701
